FAERS Safety Report 7587356-6 (Version None)
Quarter: 2011Q3

REPORT INFORMATION
  Report Type: 
  Country: None (occurrence: None)
  Receive Date: 20110701
  Receipt Date: 20110622
  Transmission Date: 20111222
  Serious: Yes (Hospitalization, Disabling)
  Sender: FDA-Public Use
  Company Number: BR-ASTRAZENECA-2011SE38294

PATIENT
  Age: 61 Year
  Sex: Female
  Weight: 74 kg

DRUGS (5)
  1. ATACAND [Suspect]
     Route: 048
     Dates: start: 20090101, end: 20110301
  2. OMEPRAZOLE [Concomitant]
     Indication: GASTROOESOPHAGEAL REFLUX DISEASE
     Route: 048
  3. OMEPRAZOLE [Concomitant]
     Indication: HIATUS HERNIA
     Route: 048
  4. ATACAND [Suspect]
     Route: 048
     Dates: start: 20040101, end: 20090101
  5. TENORETIC 100 [Suspect]
     Indication: HYPERTENSION
     Route: 048
     Dates: start: 19900101, end: 20040101

REACTIONS (8)
  - BRADYCARDIA [None]
  - DRUG INEFFECTIVE [None]
  - WEIGHT INCREASED [None]
  - FOOT FRACTURE [None]
  - ANXIETY [None]
  - EXTRASYSTOLES [None]
  - ATRIAL FIBRILLATION [None]
  - BLOOD PRESSURE INADEQUATELY CONTROLLED [None]
